FAERS Safety Report 5493166-6 (Version None)
Quarter: 2007Q4

REPORT INFORMATION
  Report Type: 
  Country: None (occurrence: None)
  Receive Date: 20071022
  Receipt Date: 20071022
  Transmission Date: 20080405
  Serious: Yes (Life-Threatening)
  Sender: FDA-Public Use
  Company Number: None

PATIENT
  Age: 35 Year
  Sex: Female
  Weight: 83.4619 kg

DRUGS (9)
  1. CLOZARIL [Suspect]
     Indication: ASPERGER'S DISORDER
     Dosage: 400 MGS AT BEDTIME ORAL
     Route: 048
  2. CLOZARIL [Suspect]
     Indication: HALLUCINATION, AUDITORY
     Dosage: 400 MGS AT BEDTIME ORAL
     Route: 048
  3. SUPPLEMENTS [Concomitant]
  4. MULTI-VITAMIN [Concomitant]
  5. OMEGA 3 [Concomitant]
  6. TAURINE [Concomitant]
  7. MAGNESIUM SULFATE [Concomitant]
  8. ZINC [Concomitant]
  9. VITA D [Concomitant]

REACTIONS (24)
  - ABNORMAL BEHAVIOUR [None]
  - AKATHISIA [None]
  - ANXIETY [None]
  - ASTHENIA [None]
  - BLOOD PRESSURE DECREASED [None]
  - BLOOD PRESSURE INCREASED [None]
  - CONFUSIONAL STATE [None]
  - DEPRESSION [None]
  - DIZZINESS [None]
  - DROOLING [None]
  - DRUG DEPENDENCE [None]
  - DYSPHAGIA [None]
  - DYSPNOEA [None]
  - FATIGUE [None]
  - HALLUCINATION, AUDITORY [None]
  - HEART RATE INCREASED [None]
  - HEART RATE IRREGULAR [None]
  - MUSCULOSKELETAL STIFFNESS [None]
  - NERVOUSNESS [None]
  - PALLOR [None]
  - PARALYSIS [None]
  - RESTLESSNESS [None]
  - SOMNOLENCE [None]
  - TREMOR [None]
